FAERS Safety Report 4828098-7 (Version None)
Quarter: 2005Q4

REPORT INFORMATION
  Report Type: 
  Country: None (occurrence: None)
  Receive Date: 20051114
  Receipt Date: 20051114
  Transmission Date: 20060501
  Serious: Yes (Life-Threatening)
  Sender: FDA-Public Use
  Company Number: None

PATIENT
  Age: 75 Year
  Sex: Male

DRUGS (12)
  1. LEVAQUIN [Suspect]
     Indication: PNEUMONIA
     Dosage: 500MG QD IV
     Route: 042
     Dates: start: 20050718, end: 20050801
  2. NORVASC [Concomitant]
  3. CLINDAMYCIN [Concomitant]
  4. DOCUSATE [Concomitant]
  5. HEPARIN [Concomitant]
  6. ALBUTEROL SULFATE AND IPRATROPIUM BROMIDE [Concomitant]
  7. LANSOPRAZOLE [Concomitant]
  8. REGLAN [Concomitant]
  9. METOPROLOL [Concomitant]
  10. PHENYTOIN [Concomitant]
  11. ZOCOR [Concomitant]
  12. SUCRALAFATE [Concomitant]

REACTIONS (3)
  - LEUKOCYTOSIS [None]
  - PNEUMONIA [None]
  - THROMBOCYTOPENIA [None]
